FAERS Safety Report 23926586 (Version 1)
Quarter: 2024Q2

REPORT INFORMATION
  Report Type: Spontaneous
  Country: RO (occurrence: None)
  Receive Date: 20240531
  Receipt Date: 20240531
  Transmission Date: 20240716
  Serious: Yes (Life-Threatening, Other)
  Sender: FDA-Public Use
  Company Number: 2024A123698

PATIENT
  Age: 75 Year
  Sex: Female

DRUGS (4)
  1. ACALABRUTINIB [Suspect]
     Active Substance: ACALABRUTINIB
     Indication: Chronic lymphocytic leukaemia
     Dosage: 200 MG PER DAY
     Route: 048
     Dates: start: 202312, end: 202404
  2. ACALABRUTINIB [Suspect]
     Active Substance: ACALABRUTINIB
     Indication: Chronic lymphocytic leukaemia
     Dosage: 100 MG PER DAY
     Route: 048
     Dates: start: 202304, end: 20240429
  3. ACYCLOVIR [Concomitant]
     Active Substance: ACYCLOVIR
     Route: 048
     Dates: start: 202312
  4. ALLOPURINOL [Concomitant]
     Active Substance: ALLOPURINOL
     Dosage: 1 TABLET PER DAY
     Route: 048
     Dates: start: 202312

REACTIONS (5)
  - Agranulocytosis [Recovered/Resolved]
  - Rash macular [Recovered/Resolved]
  - Rash pruritic [Recovered/Resolved]
  - Thrombocytopenia [Recovered/Resolved]
  - Musculoskeletal pain [Recovered/Resolved]

NARRATIVE: CASE EVENT DATE: 20240201
